FAERS Safety Report 4964493-3 (Version None)
Quarter: 2006Q1

REPORT INFORMATION
  Report Type: 
  Country: None (occurrence: None)
  Receive Date: 20060331
  Receipt Date: 20060314
  Transmission Date: 20060701
  Serious: Yes (Hospitalization)
  Sender: FDA-Public Use
  Company Number: US200601002872

PATIENT
  Age: 43 Year
  Sex: Male
  Weight: 98.9 kg

DRUGS (12)
  1. ZYPREXA [Suspect]
     Dosage: 5 MG; 20 MG; 7.5 MG
     Dates: start: 20020927, end: 20041005
  2. ZYPREXA [Suspect]
     Dosage: 5 MG; 20 MG; 7.5 MG
     Dates: start: 20021022
  3. ZYPREXA [Suspect]
     Dosage: 5 MG; 20 MG; 7.5 MG
     Dates: start: 20030327
  4. NEURONTIN [Concomitant]
  5. ATIVAN [Concomitant]
  6. THIAMINE HYDROCHLORIDE (THIAMINE HYDROCHLORIDE WITH VITAMINS-MINERALS) [Concomitant]
  7. PREVACID [Concomitant]
  8. FOLIC ACID (FOLIC ACID WITH VITAMINS-MINERALS) [Concomitant]
  9. LACTULOSE [Concomitant]
  10. LEXAPRO [Concomitant]
  11. LIPITOR [Concomitant]
  12. DEPAKOTE [Concomitant]

REACTIONS (10)
  - ALCOHOL POISONING [None]
  - BACK PAIN [None]
  - BONE PAIN [None]
  - CONSTIPATION [None]
  - DRUG DOSE OMISSION [None]
  - FALL [None]
  - HEPATIC ENCEPHALOPATHY [None]
  - PANCREATITIS ACUTE [None]
  - THERAPEUTIC AGENT TOXICITY [None]
  - TREATMENT NONCOMPLIANCE [None]
